FAERS Safety Report 6710713-4 (Version None)
Quarter: 2010Q2

REPORT INFORMATION
  Report Type: 
  Country: None (occurrence: None)
  Receive Date: 20100504
  Receipt Date: 20100504
  Transmission Date: 20101027
  Serious: Yes (Hospitalization)
  Sender: FDA-Public Use
  Company Number: None

PATIENT
  Age: 22 Month
  Sex: Male
  Weight: 15.8759 kg

DRUGS (2)
  1. CHILDRENS TYLENOL JOHNSON + JOHNSON [Suspect]
     Indication: PYREXIA
     Dosage: ONE AND ONE FOURTH TEASPOON EVERY 4 HOURS ALT. PO
     Route: 048
     Dates: start: 20100418, end: 20100422
  2. CHILDREN'S MOTRIN [Suspect]
     Indication: PYREXIA
     Dosage: ONE AND ONE FOURTH TEASPOON EVERY 8 HOURS ALT PO
     Route: 048
     Dates: start: 20100418, end: 20100422

REACTIONS (4)
  - HYPERSOMNIA [None]
  - LETHARGY [None]
  - OVERDOSE [None]
  - PRODUCT QUALITY ISSUE [None]
